FAERS Safety Report 17010989 (Version 1)
Quarter: 2019Q4

REPORT INFORMATION
  Report Type: Spontaneous
  Country: ES (occurrence: ES)
  Receive Date: 20191108
  Receipt Date: 20191108
  Transmission Date: 20200122
  Serious: Yes (Life-Threatening, Hospitalization)
  Sender: FDA-Public Use
  Company Number: ES-MYLANLABS-2019M1106584

PATIENT
  Age: 16 Year
  Sex: Male
  Weight: 50 kg

DRUGS (7)
  1. FUROSEMIDE. [Concomitant]
     Active Substance: FUROSEMIDE
     Dosage: 10 MILLIGRAM, BID
  2. AMOXICILLIN. [Concomitant]
     Active Substance: AMOXICILLIN
     Dosage: 250 MILLIGRAM, BID
  3. VITAMINE D [Concomitant]
     Active Substance: CHOLECALCIFEROL
     Dosage: UNK, QD
  4. ECULIZUMAB [Concomitant]
     Active Substance: ECULIZUMAB
     Dosage: 600 MILLIGRAM, BIWEEKLY
  5. QUETIAPINE. [Suspect]
     Active Substance: QUETIAPINE
     Indication: PRODUCT USED FOR UNKNOWN INDICATION
     Dosage: 59 TABLETS OF QUETIPINE 300 MG PROLONGED RELEASE
     Route: 048
  6. CAPTOPRIL. [Concomitant]
     Active Substance: CAPTOPRIL
     Dosage: 50 MILLIGRAM, BID
  7. MYCOPHENOLIC ACID. [Concomitant]
     Active Substance: MYCOPHENOLIC ACID
     Dosage: 360 MILLIGRAM, BID

REACTIONS (6)
  - Suicide attempt [Unknown]
  - Mobility decreased [Unknown]
  - General physical health deterioration [Unknown]
  - Dyspnoea [Unknown]
  - Overdose [Unknown]
  - Coma [Unknown]
